FAERS Safety Report 7753713-8 (Version None)
Quarter: 2011Q3

REPORT INFORMATION
  Report Type: 
  Country: None (occurrence: None)
  Receive Date: 20110915
  Receipt Date: 20110915
  Transmission Date: 20111222
  Serious: Yes (Life-Threatening)
  Sender: FDA-Public Use
  Company Number: None

PATIENT
  Age: 61 Month
  Sex: Female
  Weight: 127 kg

DRUGS (1)
  1. PROLIA [Suspect]
     Indication: HYPERSENSITIVITY
     Dosage: 1 TREATMENT
     Route: 030
     Dates: start: 20110613, end: 20110915

REACTIONS (13)
  - OSTEITIS [None]
  - ARTHRALGIA [None]
  - TOOTHACHE [None]
  - DIZZINESS [None]
  - RASH [None]
  - OSTEONECROSIS OF JAW [None]
  - PNEUMONIA [None]
  - ASTHENIA [None]
  - PAIN [None]
  - PRURITUS [None]
  - SINUS HEADACHE [None]
  - COUGH [None]
  - ALOPECIA [None]
